FAERS Safety Report 14092243 (Version 1)
Quarter: 2017Q4

REPORT INFORMATION
  Report Type: Spontaneous
  Country: DE (occurrence: DE)
  Receive Date: 20171014
  Receipt Date: 20171014
  Transmission Date: 20180321
  Serious: No
  Sender: FDA-Public Use
  Company Number: None

PATIENT
  Age: 29 Year
  Sex: Female
  Weight: 82 kg

DRUGS (2)
  1. CENTRUM WOMEN [Concomitant]
     Active Substance: VITAMINS
  2. VICKS FIRST DEFENSE (CAMPHOR (NATURAL)\EUCALYPTUS OIL\MENTHOL\ZINC) [Suspect]
     Active Substance: CAMPHOR (NATURAL)\EUCALYPTUS OIL\MENTHOL\ZINC
     Indication: PROPHYLAXIS
     Dosage: QUANTITY:1 SPRAY(S);?
     Route: 055
     Dates: start: 20171014, end: 20171014

REACTIONS (6)
  - Head discomfort [None]
  - Vomiting [None]
  - Eye irritation [None]
  - Headache [None]
  - Nasal discomfort [None]
  - Ocular hyperaemia [None]

NARRATIVE: CASE EVENT DATE: 20171014
